FAERS Safety Report 16381374 (Version 2)
Quarter: 2019Q2

REPORT INFORMATION
  Report Type: Spontaneous
  Country: PE (occurrence: PE)
  Receive Date: 20190603
  Receipt Date: 20190614
  Transmission Date: 20190711
  Serious: Yes (Other)
  Sender: FDA-Public Use
  Company Number: PE-ROCHE-2327928

PATIENT
  Sex: Male

DRUGS (2)
  1. XELODA [Suspect]
     Active Substance: CAPECITABINE
     Indication: HEPATIC CANCER
  2. XELODA [Suspect]
     Active Substance: CAPECITABINE
     Indication: COLON CANCER
     Dosage: 3 PILLS IN THE MORNING AND 3 PILLS BY NIGHT
     Route: 048
     Dates: start: 20190514

REACTIONS (7)
  - Decreased appetite [Unknown]
  - Tremor [Unknown]
  - Hypoaesthesia [Unknown]
  - Nausea [Unknown]
  - Fatigue [Unknown]
  - Hyperaesthesia [Unknown]
  - Diarrhoea [Unknown]
